FAERS Safety Report 8577485-2 (Version None)
Quarter: 2012Q3

REPORT INFORMATION
  Report Type: 
  Country: None (occurrence: None)
  Receive Date: 20120807
  Receipt Date: 20080818
  Transmission Date: 20120928
  Serious: Yes (Other)
  Sender: FDA-Public Use
  Company Number: CO-PFIZER INC-2012187524

PATIENT
  Age: 51 Year
  Sex: Male

DRUGS (6)
  1. ACETYLSALICYLIC ACID [Concomitant]
     Dosage: 100 MG, ONCE DAILY
  2. OLMESARTAN MEDOXOMIL AND HYDROCHLOROTHIZIDE [Suspect]
     Indication: HYPERTENSION
     Dosage: [OLMESARTAN MEDOXOMIL 20 MG]/ [HYDROCHLOROTHIAZIDE 12.5MG] 1DF, ONCE DAILY
  3. GLIBENCLAMIDE [Concomitant]
     Dosage: 5 MG, TWICE DAILY
  4. LIPITOR [Suspect]
     Dosage: 40 MG, ONCE DAILY
  5. LIPITOR [Suspect]
     Indication: DYSLIPIDAEMIA
     Dosage: 10 MG, ONCE DAILY
  6. METFORMIN [Concomitant]
     Dosage: 850 MG, ONCE DAILY

REACTIONS (4)
  - HAEMATURIA [None]
  - GLYCOSURIA [None]
  - LEUKOCYTURIA [None]
  - PALPITATIONS [None]
